FAERS Safety Report 6668393-2 (Version None)
Quarter: 2010Q2

REPORT INFORMATION
  Report Type: 
  Country: None (occurrence: None)
  Receive Date: 20100401
  Receipt Date: 20100323
  Transmission Date: 20101027
  Serious: Yes (Death)
  Sender: FDA-Public Use
  Company Number: 545938

PATIENT
  Age: 61 Year
  Sex: Male
  Weight: 119 kg

DRUGS (5)
  1. FENTANYL CITRATE [Suspect]
     Indication: ENDOTRACHEAL INTUBATION
     Dosage: 100 MCG, INTRAVENEOUS
     Route: 042
     Dates: start: 20100202, end: 20100212
  2. PROPOFOL [Suspect]
     Indication: INDUCTION OF ANAESTHESIA
     Dosage: 200 MG, INTRAVENEOUS
     Route: 042
     Dates: start: 20100202, end: 20100212
  3. ATRACURIUM BESILATE [Suspect]
     Indication: ENDOTRACHEAL INTUBATION
     Dosage: 40 MG, INTRAVENEOUS
     Route: 042
     Dates: start: 20100202, end: 20100212
  4. CO-AMOXICLAV / 00756801/ [Suspect]
     Indication: ANTIBIOTIC PROPHYLAXIS
     Dosage: 1.2 G INTRAVENOUS
     Route: 042
     Dates: start: 20100202, end: 20100212
  5. TIOTROPIUM BROMIDE [Concomitant]

REACTIONS (1)
  - ANAPHYLACTIC SHOCK [None]
